FAERS Safety Report 7709876-3 (Version None)
Quarter: 2011Q3

REPORT INFORMATION
  Report Type: 
  Country: None (occurrence: None)
  Receive Date: 20110825
  Receipt Date: 20110818
  Transmission Date: 20111222
  Serious: Yes (Death, Hospitalization, Other)
  Sender: FDA-Public Use
  Company Number: US-CELGENEUS-163-21880-11071472

PATIENT
  Sex: Male

DRUGS (6)
  1. LEVOTHYROXINE SODIUM [Concomitant]
     Route: 065
  2. ZOFRAN [Concomitant]
     Route: 065
  3. ASPIRIN [Suspect]
     Route: 065
  4. MULTI-VITAMINS [Concomitant]
     Route: 065
  5. REVLIMID [Suspect]
     Indication: AMYLOIDOSIS
     Dosage: 7.5 MILLIGRAM
     Route: 048
     Dates: start: 20110608, end: 20110628
  6. BUMEX [Concomitant]
     Route: 065

REACTIONS (4)
  - HAEMOGLOBIN DECREASED [None]
  - AMYLOIDOSIS [None]
  - PLATELET COUNT DECREASED [None]
  - DEATH [None]
